FAERS Safety Report 10649270 (Version 1)
Quarter: 2014Q4

REPORT INFORMATION
  Report Type: Spontaneous
  Country: US (occurrence: None)
  Receive Date: 20141205
  Receipt Date: 20141205
  Transmission Date: 20150529
  Serious: No
  Sender: FDA-Public Use
  Company Number: USA-2014100013

PATIENT
  Age: 75 Year
  Sex: Female

DRUGS (4)
  1. BENADRYL ALLERGY (DIPHENHYDRAMINE HYDROCHLORIDE) [Concomitant]
  2. LUMIGAN(BIMATOPROST) [Concomitant]
  3. POMALYST [Suspect]
     Active Substance: POMALIDOMIDE
     Indication: PLASMA CELL MYELOMA
     Dosage: 4 MG, 21 IN 21 D, PO
     Route: 048
     Dates: start: 20130429
  4. PENICILLIN V POTASSIUM (PHENOXYMETHYLPENICILLIN POTASSIUM) [Concomitant]

REACTIONS (1)
  - Tooth infection [None]
